FAERS Safety Report 24427147 (Version 9)
Quarter: 2025Q2

REPORT INFORMATION
  Report Type: Report from Study
  Country: US (occurrence: US)
  Receive Date: 20241011
  Receipt Date: 20250507
  Transmission Date: 20250717
  Serious: Yes (Hospitalization, Other)
  Sender: EXELIXIS
  Company Number: US-EXELIXIS-EXL-2024-000534

PATIENT
  Age: 81 Year
  Sex: Female

DRUGS (9)
  1. CABOMETYX [Suspect]
     Active Substance: CABOZANTINIB S-MALATE
     Indication: Breast cancer female
     Dosage: 40 MG, QD
     Dates: start: 20240912, end: 20241014
  2. CABOMETYX [Suspect]
     Active Substance: CABOZANTINIB S-MALATE
     Indication: Angiosarcoma
     Dosage: 40 MG, QD
     Dates: start: 20241109
  3. OPDIVO [Suspect]
     Active Substance: NIVOLUMAB
     Indication: Breast cancer female
     Dates: start: 20240912
  4. OPDIVO [Suspect]
     Active Substance: NIVOLUMAB
     Indication: Angiosarcoma
  5. ANASTROZOLE [Concomitant]
     Active Substance: ANASTROZOLE
  6. LEVOTHYROXINE [Concomitant]
     Active Substance: LEVOTHYROXINE
  7. SEROQUEL [Concomitant]
     Active Substance: QUETIAPINE FUMARATE
  8. HYDROCHLOROTHIAZIDE [Concomitant]
     Active Substance: HYDROCHLOROTHIAZIDE
  9. VITAMIN D3 [Concomitant]
     Active Substance: CHOLECALCIFEROL

REACTIONS (14)
  - Neuropathy peripheral [Not Recovered/Not Resolved]
  - Pulmonary embolism [Recovered/Resolved]
  - Upper limb fracture [Unknown]
  - Fall [Unknown]
  - Shoulder fracture [Unknown]
  - Central venous catheterisation [Unknown]
  - Fatigue [Not Recovered/Not Resolved]
  - Oral pain [Not Recovered/Not Resolved]
  - Blood pressure increased [Recovering/Resolving]
  - Malaise [Unknown]
  - Device related infection [Unknown]
  - Skin ulcer [Unknown]
  - Dyspnoea [Unknown]
  - Off label use [Unknown]

NARRATIVE: CASE EVENT DATE: 20250206
